FAERS Safety Report 18893756 (Version 2)
Quarter: 2021Q3

REPORT INFORMATION
  Report Type: Spontaneous
  Country: US (occurrence: US)
  Receive Date: 20210215
  Receipt Date: 20210927
  Transmission Date: 20211014
  Serious: Yes (Other)
  Sender: FDA-Public Use
  Company Number: US-PURDUE-USA-2020-0205366

PATIENT
  Sex: Male

DRUGS (3)
  1. OXYCONTIN [Suspect]
     Active Substance: OXYCODONE HYDROCHLORIDE
     Indication: PRODUCT USED FOR UNKNOWN INDICATION
     Dosage: UNKNOWN
     Route: 048
  2. OXY IR [Suspect]
     Active Substance: OXYCODONE HYDROCHLORIDE
     Indication: PRODUCT USED FOR UNKNOWN INDICATION
     Dosage: UNKNOWN
     Route: 065
  3. OXYFAST [Suspect]
     Active Substance: OXYCODONE
     Dosage: UNKNOWN
     Route: 048

REACTIONS (11)
  - Cardiac disorder [Unknown]
  - Arthralgia [Unknown]
  - Developmental delay [Unknown]
  - Bone pain [Unknown]
  - Overdose [Unknown]
  - Spinal pain [Unknown]
  - Pain in extremity [Unknown]
  - Chest pain [Unknown]
  - Drug dependence [Unknown]
  - Pain [Unknown]
  - Learning disability [Unknown]
